FAERS Safety Report 9316714 (Version 1)
Quarter: 2013Q2

REPORT INFORMATION
  Report Type: Spontaneous
  Country: US (occurrence: None)
  Receive Date: 20130528
  Receipt Date: 20130528
  Transmission Date: 20140414
  Serious: Yes (Hospitalization, Disabling, Other)
  Sender: FDA-Public Use
  Company Number: None

PATIENT
  Age: 20 Month
  Sex: Male
  Weight: 10.43 kg

DRUGS (1)
  1. HYLANDS TEETHING TABLETS [Suspect]
     Indication: TEETHING
     Dosage: 2 TEETHING TALETS WHEN NEEDED
     Route: 048
     Dates: start: 20110501, end: 20130525

REACTIONS (5)
  - Agitation [None]
  - Tremor [None]
  - Motor developmental delay [None]
  - Convulsion [None]
  - Crying [None]
